FAERS Safety Report 7570856-2 (Version None)
Quarter: 2011Q2

REPORT INFORMATION
  Report Type: 
  Country: None (occurrence: None)
  Receive Date: 20110622
  Receipt Date: 20110622
  Transmission Date: 20111010
  Serious: Yes (Life-Threatening, Other)
  Sender: FDA-Public Use
  Company Number: None

PATIENT
  Sex: Male
  Weight: 61.2356 kg

DRUGS (1)
  1. JALYN [Suspect]
     Indication: BENIGN PROSTATIC HYPERPLASIA
     Dosage: 1 CAPSULE AT BEDTIME
     Dates: start: 20110522, end: 20110527

REACTIONS (5)
  - SOMNOLENCE [None]
  - DIZZINESS [None]
  - COORDINATION ABNORMAL [None]
  - MOTOR DYSFUNCTION [None]
  - PRODUCT SUBSTITUTION ISSUE [None]
